FAERS Safety Report 9644206 (Version 2)
Quarter: 2013Q4

REPORT INFORMATION
  Report Type: Spontaneous
  Country: SE (occurrence: SE)
  Receive Date: 20131024
  Receipt Date: 20131024
  Transmission Date: 20140711
  Serious: Yes (Life-Threatening)
  Sender: FDA-Public Use
  Company Number: SE-ROCHE-1287597

PATIENT
  Sex: Female
  Weight: 48 kg

DRUGS (15)
  1. MABTHERA [Suspect]
     Indication: LYMPHOMA
     Route: 065
  2. CYCLOPHOSPHAMIDE [Concomitant]
     Indication: LYMPHOMA
  3. HYDROXYDAUNORUBICIN [Concomitant]
     Indication: LYMPHOMA
  4. ONCOVIN [Concomitant]
     Indication: LYMPHOMA
  5. PREDNISOLON [Concomitant]
     Indication: LYMPHOMA
  6. BENDAMUSTINE [Concomitant]
     Indication: B-CELL LYMPHOMA
     Route: 065
     Dates: start: 201210
  7. XALATAN [Concomitant]
     Route: 065
  8. FLUNITRAZEPAM [Concomitant]
     Route: 065
  9. AZARGA [Concomitant]
     Route: 065
  10. STILNOCT [Concomitant]
     Route: 065
  11. TIMOLOL [Concomitant]
     Route: 065
  12. SOBRIL [Concomitant]
     Route: 065
  13. ALLOPURINOL [Concomitant]
     Route: 065
     Dates: end: 20121015
  14. DELTISON TABLET [Concomitant]
     Route: 065
     Dates: end: 20121015
  15. OMEPRAZOLE [Concomitant]
     Route: 065

REACTIONS (13)
  - Pulmonary arterial pressure increased [Unknown]
  - Mitral valve incompetence [Not Recovered/Not Resolved]
  - Respiratory failure [Unknown]
  - Cardiac failure congestive [Recovered/Resolved]
  - Dyspnoea [Unknown]
  - Chills [Unknown]
  - Blood pressure increased [Unknown]
  - Pruritus [Not Recovered/Not Resolved]
  - Erythema [Unknown]
  - Vomiting [Unknown]
  - Anxiety [Unknown]
  - Disease progression [Unknown]
  - Psoriasis [Unknown]
